FAERS Safety Report 9598773 (Version 1)
Quarter: 2013Q4

REPORT INFORMATION
  Report Type: Spontaneous
  Country: US (occurrence: US)
  Receive Date: 20131004
  Receipt Date: 20131004
  Transmission Date: 20140711
  Serious: No
  Sender: FDA-Public Use
  Company Number: US-AMGEN-USASP2013025686

PATIENT
  Age: 42 Year
  Sex: Female

DRUGS (9)
  1. ENBREL [Suspect]
     Indication: PRODUCT USED FOR UNKNOWN INDICATION
     Dosage: 50 MG, QWK
     Route: 058
  2. CYMBALTA [Concomitant]
     Dosage: 20 MG, UNK
  3. SKELAXIN                           /00611501/ [Concomitant]
     Dosage: 800 MG, UNK
  4. HYDROCHLOROTHIAZIDE W/TRIAMTERENE [Concomitant]
     Dosage: 25-37.5
  5. LISINOPRIL [Concomitant]
     Dosage: 20 MG, UNK
  6. ZOLOFT [Concomitant]
     Dosage: 100 MG, UNK
  7. NEXIUM                             /01479302/ [Concomitant]
     Dosage: 40 MG, UNK
  8. VICODIN [Concomitant]
     Dosage: 5-300 MG
  9. LYSINE [Concomitant]
     Dosage: 1000 MG, UNK

REACTIONS (2)
  - Axillary mass [Unknown]
  - Oral herpes [Unknown]
